FAERS Safety Report 14046879 (Version 14)
Quarter: 2018Q3

REPORT INFORMATION
  Report Type: Report from Study
  Country: CA (occurrence: CA)
  Receive Date: 20171005
  Receipt Date: 20180918
  Transmission Date: 20181010
  Serious: Yes (Hospitalization, Other)
  Sender: FDA-Public Use
  Company Number: PHHY2015CA039204

PATIENT
  Age: 71 Year
  Sex: Female

DRUGS (11)
  1. LUTETIUM (LU 177) [Suspect]
     Active Substance: LUTETIUM LU-177
     Indication: PRODUCT USED FOR UNKNOWN INDICATION
     Dosage: UNK
     Route: 065
  2. TYLENOL [Concomitant]
     Active Substance: ACETAMINOPHEN
     Indication: PROCEDURAL PAIN
     Dosage: 1 G, Q6H
     Route: 048
     Dates: start: 201711
  3. SANDOSTATIN LAR DEPOT [Suspect]
     Active Substance: OCTREOTIDE ACETATE
     Indication: NEUROENDOCRINE CARCINOMA
     Dosage: 20 MG, QMO (EVERY FOUR WEEKS)
     Route: 030
     Dates: start: 20140619, end: 20151204
  4. SANDOSTATIN LAR DEPOT [Suspect]
     Active Substance: OCTREOTIDE ACETATE
     Dosage: 30 MG, QMO (ONCE A MONTH)
     Route: 030
     Dates: start: 20151231
  5. VALSARTAN. [Suspect]
     Active Substance: VALSARTAN
     Indication: HYPERTENSION
     Dosage: 90 MG, (HALF A TABLET A DAY)
     Route: 065
  6. CORTISONE [Suspect]
     Active Substance: CORTISONE\HYDROCORTISONE
     Indication: PRODUCT USED FOR UNKNOWN INDICATION
     Dosage: UNK
     Route: 065
  7. ECTOSONE [Concomitant]
     Indication: BURNING SENSATION
  8. VITAMIN D [Concomitant]
     Active Substance: CHOLECALCIFEROL
     Indication: PRODUCT USED FOR UNKNOWN INDICATION
     Dosage: 10 OT, QW
     Route: 065
  9. ECTOSONE [Concomitant]
     Indication: ERYTHEMA
  10. SANDOSTATIN LAR DEPOT [Suspect]
     Active Substance: OCTREOTIDE ACETATE
     Dosage: 30 MG, QMO (ONCE A MONTH)
     Route: 030
  11. ECTOSONE [Concomitant]
     Indication: POST THROMBOTIC SYNDROME
     Dosage: 0.1 %, QD
     Route: 065
     Dates: start: 20171213

REACTIONS (30)
  - Intestinal obstruction [Recovered/Resolved]
  - Body temperature decreased [Unknown]
  - Burning sensation [Unknown]
  - Constipation [Unknown]
  - Wrong technique in product usage process [Unknown]
  - Malaise [Unknown]
  - Sleep disorder [Unknown]
  - Fatigue [Unknown]
  - Dyspepsia [Unknown]
  - Procedural pain [Unknown]
  - Vomiting [Not Recovered/Not Resolved]
  - Gastrointestinal cancer metastatic [Unknown]
  - Abdominal pain [Unknown]
  - Nasopharyngitis [Unknown]
  - Post thrombotic syndrome [Unknown]
  - Malignant neoplasm progression [Unknown]
  - Decreased appetite [Unknown]
  - Asthenia [Not Recovered/Not Resolved]
  - Carpal tunnel syndrome [Unknown]
  - Blood pressure diastolic decreased [Unknown]
  - Erythema [Unknown]
  - Complication of device insertion [Unknown]
  - Weight decreased [Unknown]
  - Dizziness [Unknown]
  - Blood pressure systolic increased [Unknown]
  - Alopecia [Unknown]
  - Nausea [Not Recovered/Not Resolved]
  - Intestinal obstruction [Unknown]
  - Hypoaesthesia [Unknown]
  - Pharyngitis [Unknown]

NARRATIVE: CASE EVENT DATE: 20150327
